FAERS Safety Report 7843464-3 (Version None)
Quarter: 2011Q4

REPORT INFORMATION
  Report Type: 
  Country: None (occurrence: None)
  Receive Date: 20111025
  Receipt Date: 20111012
  Transmission Date: 20120403
  Serious: Yes (Hospitalization)
  Sender: FDA-Public Use
  Company Number: FR-ROCHE-1003249

PATIENT
  Sex: Male
  Weight: 76 kg

DRUGS (1)
  1. VEMURAFENIB [Suspect]
     Indication: MALIGNANT MELANOMA
     Dosage: LAST DOSE PRIOR TO SAE: 29 SEP 2011
     Route: 048
     Dates: start: 20101025

REACTIONS (1)
  - RENAL IMPAIRMENT [None]
